FAERS Safety Report 7103140-1 (Version None)
Quarter: 2010Q4

REPORT INFORMATION
  Report Type: 
  Country: None (occurrence: None)
  Receive Date: 20101108
  Receipt Date: 20101018
  Transmission Date: 20110411
  Serious: No
  Sender: FDA-Public Use
  Company Number: US-145063

PATIENT
  Sex: Male
  Weight: 101.1521 kg

DRUGS (13)
  1. WINRHO SDF LIQUID [Suspect]
     Indication: IDIOPATHIC THROMBOCYTOPENIC PURPURA
     Dosage: INTRAVENOUS (NOT OTHERWISE SPECIFIED)) ; (INTRAVENOUS (NOT OTHERWISE SPECIFIED))
     Route: 042
     Dates: start: 20100709, end: 20100709
  2. WINRHO SDF LIQUID [Suspect]
     Indication: IDIOPATHIC THROMBOCYTOPENIC PURPURA
     Dosage: INTRAVENOUS (NOT OTHERWISE SPECIFIED)) ; (INTRAVENOUS (NOT OTHERWISE SPECIFIED))
     Route: 042
     Dates: start: 20100709, end: 20100709
  3. WINRHO SDF LIQUID [Suspect]
  4. KEPPRA [Concomitant]
  5. ATENOLOL [Concomitant]
  6. BUMEX [Concomitant]
  7. COMBIVENT [Concomitant]
  8. COUMADIN [Concomitant]
  9. DALMANE [Concomitant]
  10. POTASSIUM CHLORIDE [Concomitant]
  11. VYTORIN [Concomitant]
  12. LUTEIN [Concomitant]
  13. RANIBIZUMAB [Concomitant]

REACTIONS (7)
  - BACK PAIN [None]
  - CHILLS [None]
  - HAEMOGLOBIN DECREASED [None]
  - HAEMOLYSIS [None]
  - INTRAVASCULAR HAEMOLYSIS [None]
  - PYREXIA [None]
  - URINE COLOUR ABNORMAL [None]
